FAERS Safety Report 8878813 (Version 1)
Quarter: 2012Q4

REPORT INFORMATION
  Report Type: 
  Country: US (occurrence: US)
  Receive Date: 20121026
  Receipt Date: 20121026
  Transmission Date: 20130627
  Serious: No
  Sender: FDA-Public Use
  Company Number: US-PFIZER INC-2012264315

PATIENT

DRUGS (1)
  1. FLUCONAZOLE [Suspect]

REACTIONS (2)
  - Malaise [Unknown]
  - Activities of daily living impaired [Unknown]
